FAERS Safety Report 5123874-8 (Version None)
Quarter: 2006Q4

REPORT INFORMATION
  Report Type: 
  Country: None (occurrence: None)
  Receive Date: 20061010
  Receipt Date: 20061005
  Transmission Date: 20070319
  Serious: Yes (Death, Hospitalization)
  Sender: FDA-Public Use
  Company Number: 406079

PATIENT
  Age: 75 Year
  Sex: Male

DRUGS (8)
  1. CARVEDILOL [Suspect]
     Indication: CARDIAC FAILURE CHRONIC
     Route: 048
     Dates: start: 20030611
  2. LAC B [Concomitant]
  3. ALDACTONE [Concomitant]
  4. WARFARIN SODIUM [Concomitant]
  5. MAGNESIUM OXIDE [Concomitant]
  6. ALLOPURINOL [Concomitant]
  7. BLOPRESS [Concomitant]
  8. DIGOXIN [Concomitant]

REACTIONS (3)
  - CARDIAC ARREST [None]
  - CARDIAC FAILURE [None]
  - VENTRICULAR FIBRILLATION [None]
